FAERS Safety Report 7500776-0 (Version None)
Quarter: 2011Q2

REPORT INFORMATION
  Report Type: 
  Country: None (occurrence: None)
  Receive Date: 20110524
  Receipt Date: 20110513
  Transmission Date: 20111010
  Serious: Yes (Life-Threatening)
  Sender: FDA-Public Use
  Company Number: PHHY2011US40767

PATIENT
  Age: 90 Year
  Sex: Female

DRUGS (7)
  1. METOPROLOL TARTRATE [Suspect]
     Dosage: 3 TIMES A DAY
  2. LORAZEPAM [Suspect]
     Indication: ANXIETY DISORDER
     Dosage: 0.5 MG, PRN
  3. PLAVIX [Suspect]
  4. TEKTURNA [Suspect]
     Dosage: 300 MG, QD
  5. NORVASC [Suspect]
  6. HYDRALAZINE HCL [Suspect]
     Dosage: FOUR TIMES A DAY
  7. ATACAND [Suspect]

REACTIONS (10)
  - BLOOD PRESSURE INCREASED [None]
  - DIZZINESS [None]
  - APPARENT DEATH [None]
  - NERVOUSNESS [None]
  - TREMOR [None]
  - DRUG INEFFECTIVE [None]
  - DIARRHOEA [None]
  - GAIT DISTURBANCE [None]
  - PAIN IN EXTREMITY [None]
  - SWELLING [None]
